FAERS Safety Report 13125997 (Version 39)
Quarter: 2025Q4

REPORT INFORMATION
  Report Type: Report from Study
  Country: BR (occurrence: BR)
  Receive Date: 20170118
  Receipt Date: 20251015
  Transmission Date: 20260117
  Serious: Yes (Other)
  Sender: GLAXOSMITHKLINE
  Company Number: BR-GLAXOSMITHKLINE-BR2016GSK017485

PATIENT
  Age: 64 Year
  Sex: Female
  Weight: 78 kg

DRUGS (14)
  1. BELIMUMAB [Suspect]
     Active Substance: BELIMUMAB
     Indication: Systemic lupus erythematosus
     Dosage: UNK
  2. BELIMUMAB [Suspect]
     Active Substance: BELIMUMAB
     Dosage: UNK, 2 FLASKS OF 400MG
  3. BELIMUMAB [Suspect]
     Active Substance: BELIMUMAB
     Dosage: 120 MG
  4. BELIMUMAB [Suspect]
     Active Substance: BELIMUMAB
     Dosage: 800 MG
  5. BELIMUMAB [Suspect]
     Active Substance: BELIMUMAB
     Dosage: UNK
  6. AMOXICILLIN [Suspect]
     Active Substance: AMOXICILLIN
     Dosage: UNK, BID
  7. CIPROFLOXACIN HYDROCHLORIDE [Suspect]
     Active Substance: CIPROFLOXACIN HYDROCHLORIDE
     Indication: Diverticulitis
     Dosage: 500 MG, BID EVERY 12 HRS
  8. GLUCOSAMINE [Concomitant]
     Active Substance: GLUCOSAMINE
     Indication: Arthropathy
     Dosage: UNK
  9. HYDROXYCHLOROQUINE SULFATE [Concomitant]
     Active Substance: HYDROXYCHLOROQUINE SULFATE
     Indication: Product used for unknown indication
     Dosage: UNK
  10. GLIMEPIRIDE [Concomitant]
     Active Substance: GLIMEPIRIDE
     Indication: Diabetes mellitus
     Dosage: UNK
  11. CLONIXIN LYSINE\CYCLOBENZAPRINE HYDROCHLORIDE [Concomitant]
     Active Substance: CLONIXIN LYSINE\CYCLOBENZAPRINE HYDROCHLORIDE
     Indication: Product used for unknown indication
     Dosage: UNK
  12. CHONDROITIN SULFATE (BOVINE) [Concomitant]
     Active Substance: CHONDROITIN SULFATE (BOVINE)
     Indication: Product used for unknown indication
     Dosage: UNK
  13. COVID-19 VACCINE [Concomitant]
     Indication: COVID-19 prophylaxis
     Dosage: UNK
  14. COVID-19 VACCINE [Concomitant]
     Dosage: UNK

REACTIONS (56)
  - Diabetic retinopathy [Unknown]
  - Cataract [Unknown]
  - Diverticulitis [Recovered/Resolved]
  - Retinal detachment [Unknown]
  - Immunodeficiency [Unknown]
  - Tooth abscess [Unknown]
  - Influenza [Recovered/Resolved]
  - Skin disorder [Unknown]
  - Arthralgia [Unknown]
  - Adverse reaction [Unknown]
  - Skin discolouration [Unknown]
  - Weight decreased [Unknown]
  - Torticollis [Recovered/Resolved]
  - Pain in extremity [Unknown]
  - Fatigue [Unknown]
  - Bone pain [Unknown]
  - Bone density decreased [Recovered/Resolved]
  - Allergic sinusitis [Recovering/Resolving]
  - Rhinitis [Recovering/Resolving]
  - Weight increased [Not Recovered/Not Resolved]
  - Pain [Not Recovered/Not Resolved]
  - Lung disorder [Unknown]
  - Inflammation [Unknown]
  - Lactose intolerance [Unknown]
  - Memory impairment [Unknown]
  - Nasopharyngitis [Unknown]
  - Illness [Unknown]
  - Swelling [Unknown]
  - Rhinorrhoea [Unknown]
  - Musculoskeletal stiffness [Unknown]
  - Vitreous floaters [Unknown]
  - Spinal pain [Unknown]
  - Myalgia [Unknown]
  - Alopecia [Unknown]
  - Impatience [Unknown]
  - Ligament rupture [Unknown]
  - Dental implantation [Unknown]
  - Limb injury [Unknown]
  - Dysphagia [Unknown]
  - Sinusitis [Recovered/Resolved]
  - Oropharyngeal pain [Unknown]
  - Insomnia [Unknown]
  - Condition aggravated [Unknown]
  - Nasal injury [Unknown]
  - Nodule [Not Recovered/Not Resolved]
  - Feeding disorder [Unknown]
  - Fall [Unknown]
  - Underdose [Unknown]
  - Overdose [Unknown]
  - Product dose omission issue [Unknown]
  - Circumstance or information capable of leading to medication error [Unknown]
  - Drug ineffective for unapproved indication [Unknown]
  - Inappropriate schedule of product administration [Unknown]
  - Product storage error [Unknown]
  - Product use in unapproved indication [Unknown]
  - Off label use [Unknown]

NARRATIVE: CASE EVENT DATE: 20170110
